FAERS Safety Report 4264135-9 (Version None)
Quarter: 2004Q1

REPORT INFORMATION
  Report Type: 
  Country: None (occurrence: None)
  Receive Date: 20040106
  Receipt Date: 20040106
  Transmission Date: 20041129
  Serious: Yes (Hospitalization, Other)
  Sender: FDA-Public Use
  Company Number: None

PATIENT
  Sex: Female
  Weight: 66.2252 kg

DRUGS (3)
  1. FUROSEMIDE [Suspect]
     Indication: DYSURIA
     Dosage: 80 MG TWICE DAILY ORAL
     Route: 048
     Dates: start: 20030910, end: 20031230
  2. FUROSEMIDE [Suspect]
     Indication: HYPERKALAEMIA
     Dosage: 80 MG TWICE DAILY ORAL
     Route: 048
     Dates: start: 20030910, end: 20031230
  3. FUROSEMIDE [Suspect]
     Indication: HYPERTENSION
     Dosage: 80 MG TWICE DAILY ORAL
     Route: 048
     Dates: start: 20030910, end: 20031230

REACTIONS (3)
  - DRUG EFFECT DECREASED [None]
  - LABORATORY TEST ABNORMAL [None]
  - PHARMACEUTICAL PRODUCT COMPLAINT [None]
